FAERS Safety Report 4900040-X (Version None)
Quarter: 2006Q1

REPORT INFORMATION
  Report Type: 
  Country: None (occurrence: None)
  Receive Date: 20060203
  Receipt Date: 20060131
  Transmission Date: 20060701
  Serious: Yes (Death)
  Sender: FDA-Public Use
  Company Number: PHBS2006MX01713

PATIENT
  Sex: Female

DRUGS (3)
  1. RITALIN [Suspect]
     Route: 065
  2. TEMGESIC [Concomitant]
  3. SUPRADOL [Concomitant]

REACTIONS (1)
  - MYOCARDIAL INFARCTION [None]
